FAERS Safety Report 22660814 (Version 1)
Quarter: 2023Q2

REPORT INFORMATION
  Report Type: Spontaneous
  Country: US (occurrence: US)
  Receive Date: 20230630
  Receipt Date: 20230630
  Transmission Date: 20230722
  Serious: Yes (Hospitalization, Other)
  Sender: FDA-Public Use
  Company Number: US-APOTEX-2023AP009560

PATIENT
  Age: 75 Year
  Sex: Male

DRUGS (3)
  1. BUPROPION [Interacting]
     Active Substance: BUPROPION
     Indication: Depression
     Dosage: UNK
     Route: 065
  2. AMANTADINE [Interacting]
     Active Substance: AMANTADINE
     Indication: Parkinson^s disease
     Dosage: UNK
     Route: 065
  3. PREDNISONE [Interacting]
     Active Substance: PREDNISONE
     Indication: Arthralgia
     Dosage: UNK
     Route: 065

REACTIONS (5)
  - Neurotoxicity [Unknown]
  - Drug interaction [Recovered/Resolved]
  - Gait disturbance [Recovered/Resolved]
  - Dyskinesia [Recovered/Resolved]
  - Confusional state [Recovered/Resolved]
